FAERS Safety Report 6228922-X (Version None)
Quarter: 2009Q2

REPORT INFORMATION
  Report Type: 
  Country: None (occurrence: None)
  Receive Date: 20090615
  Receipt Date: 20090605
  Transmission Date: 20091009
  Serious: Yes (Hospitalization)
  Sender: FDA-Public Use
  Company Number: DE-ROCHE-636822

PATIENT
  Sex: Female
  Weight: 78 kg

DRUGS (1)
  1. CAPECITABINE [Suspect]
     Dosage: AS ADJUVANT THERAPY
     Route: 048
     Dates: start: 20090312, end: 20090513

REACTIONS (2)
  - DIARRHOEA [None]
  - MUCOSAL INFLAMMATION [None]
